FAERS Safety Report 8193683-4 (Version None)
Quarter: 2012Q1

REPORT INFORMATION
  Report Type: 
  Country: None (occurrence: None)
  Receive Date: 20120308
  Receipt Date: 20120302
  Transmission Date: 20120608
  Serious: Yes (Other)
  Sender: FDA-Public Use
  Company Number: BR-BAYER-2012-021511

PATIENT
  Age: 37 Year
  Sex: Male
  Weight: 70 kg

DRUGS (3)
  1. BENICAR [Concomitant]
     Dosage: 1 DF, QD
     Route: 048
     Dates: start: 20120201
  2. ADALAT [Suspect]
     Indication: HYPERTENSION
     Dosage: 10 MG, PRN
     Route: 048
     Dates: start: 20120201
  3. INDAPEN [Concomitant]
     Dosage: 1 DF, QD
     Dates: start: 20120201

REACTIONS (1)
  - HYPERTENSION [None]
